FAERS Safety Report 19743718 (Version 1)
Quarter: 2021Q3

REPORT INFORMATION
  Report Type: Spontaneous
  Country: US (occurrence: US)
  Receive Date: 20210823
  Receipt Date: 20210823
  Transmission Date: 20211014
  Serious: No
  Sender: FDA-Public Use
  Company Number: None

PATIENT
  Age: 74 Year
  Sex: Male

DRUGS (2)
  1. BUPRENOPHINE?NALOXONE [Suspect]
     Active Substance: BUPRENORPHINE HYDROCHLORIDE\NALOXONE HYDROCHLORIDE
     Indication: DRUG THERAPY
     Route: 060
     Dates: start: 20190101, end: 20210823
  2. BUPRENORPHINE NAXOLONETABS/ FILMS [Concomitant]
     Dates: start: 20190101, end: 20210823

REACTIONS (1)
  - Nausea [None]

NARRATIVE: CASE EVENT DATE: 20210822
